FAERS Safety Report 16577564 (Version 1)
Quarter: 2019Q3

REPORT INFORMATION
  Report Type: Spontaneous
  Country: DE (occurrence: DE)
  Receive Date: 20190716
  Receipt Date: 20190716
  Transmission Date: 20191004
  Serious: Yes (Death, Hospitalization, Other)
  Sender: FDA-Public Use
  Company Number: DE-SA-2019SA144321

PATIENT
  Age: 63 Year
  Sex: Male
  Weight: 86 kg

DRUGS (1)
  1. MYOZYME [Suspect]
     Active Substance: ALGLUCOSIDASE ALFA
     Indication: GLYCOGEN STORAGE DISEASE TYPE II
     Dosage: 34 DF, Q15D
     Route: 041
     Dates: start: 2016, end: 20181107

REACTIONS (3)
  - Disease progression [Fatal]
  - Haemorrhage [Fatal]
  - Respiratory failure [Fatal]
